FAERS Safety Report 4970808-2 (Version None)
Quarter: 2006Q2

REPORT INFORMATION
  Report Type: 
  Country: None (occurrence: None)
  Receive Date: 20060412
  Receipt Date: 20060404
  Transmission Date: 20061013
  Serious: Yes (Hospitalization)
  Sender: FDA-Public Use
  Company Number: US-ROCHE-443313

PATIENT
  Age: 52 Year
  Sex: Male
  Weight: 86.2 kg

DRUGS (3)
  1. XELODA [Suspect]
     Indication: RECTAL CANCER
     Dosage: A 14 DAY CYCLE.
     Route: 048
     Dates: start: 20060201, end: 20060311
  2. ALPRAZOLAM [Concomitant]
  3. GAS-X [Concomitant]
     Route: 048

REACTIONS (1)
  - SMALL INTESTINAL OBSTRUCTION [None]
